FAERS Safety Report 6692547-2 (Version None)
Quarter: 2010Q2

REPORT INFORMATION
  Report Type: 
  Country: None (occurrence: None)
  Receive Date: 20100419
  Receipt Date: 20100406
  Transmission Date: 20101027
  Serious: Yes (Hospitalization)
  Sender: FDA-Public Use
  Company Number: 2010AL002164

PATIENT
  Sex: 0

DRUGS (5)
  1. SERTRALINE HCL [Suspect]
     Dosage: PO
     Route: 048
  2. QUETIAPINE [Concomitant]
  3. ATENOLOL [Concomitant]
  4. ACETAMINOPHEN AND CODEINE PHOSPHATE [Concomitant]
  5. PEPTAC [Concomitant]

REACTIONS (2)
  - ALCOHOL WITHDRAWAL SYNDROME [None]
  - UPPER GASTROINTESTINAL HAEMORRHAGE [None]
